FAERS Safety Report 8242600-7 (Version None)
Quarter: 2012Q1

REPORT INFORMATION
  Report Type: 
  Country: None (occurrence: None)
  Receive Date: 20120329
  Receipt Date: 20120326
  Transmission Date: 20120608
  Serious: Yes (Other)
  Sender: FDA-Public Use
  Company Number: PHHY2011JP76107

PATIENT
  Sex: Male

DRUGS (1)
  1. ZOMETA [Suspect]
     Indication: METASTASES TO BONE
     Dosage: 4 MG, PER ADMINISTRATION
     Route: 041
     Dates: start: 20080518

REACTIONS (4)
  - SKIN ULCER [None]
  - PAIN IN JAW [None]
  - SUBCUTANEOUS ABSCESS [None]
  - OSTEONECROSIS OF JAW [None]
